FAERS Safety Report 14002793 (Version 1)
Quarter: 2017Q3

REPORT INFORMATION
  Report Type: Spontaneous
  Country: US (occurrence: US)
  Receive Date: 20170922
  Receipt Date: 20170922
  Transmission Date: 20171128
  Serious: Yes (Hospitalization)
  Sender: FDA-Public Use
  Company Number: US-JNJFOC-20170628911

PATIENT
  Age: 87 Year
  Sex: Male

DRUGS (4)
  1. XARELTO [Suspect]
     Active Substance: RIVAROXABAN
     Indication: ARRHYTHMIA PROPHYLAXIS
     Dosage: VARYING DOSES OF 10 MG AND 20 MG.??ON RIVAROXABAN 10 MG TABLET AND THE FREQUENCY WAS 20 MG PO DAILY.
     Route: 048
     Dates: start: 20120412, end: 20120723
  2. XARELTO [Suspect]
     Active Substance: RIVAROXABAN
     Indication: ANAEMIA PROPHYLAXIS
     Dosage: VARYING DOSES OF 10 MG AND 20 MG.??ON RIVAROXABAN 10 MG TABLET AND THE FREQUENCY WAS 20 MG PO DAILY.
     Route: 048
     Dates: start: 20120412, end: 20120723
  3. XARELTO [Suspect]
     Active Substance: RIVAROXABAN
     Indication: ATRIAL FIBRILLATION
     Dosage: VARYING DOSES OF 10 MG AND 20 MG.??ON RIVAROXABAN 10 MG TABLET AND THE FREQUENCY WAS 20 MG PO DAILY.
     Route: 048
     Dates: start: 20120412, end: 20120723
  4. XARELTO [Suspect]
     Active Substance: RIVAROXABAN
     Indication: CEREBROVASCULAR ACCIDENT PROPHYLAXIS
     Dosage: VARYING DOSES OF 10 MG AND 20 MG.??ON RIVAROXABAN 10 MG TABLET AND THE FREQUENCY WAS 20 MG PO DAILY.
     Route: 048
     Dates: start: 20120412, end: 20120723

REACTIONS (1)
  - Gastrointestinal haemorrhage [Recovering/Resolving]

NARRATIVE: CASE EVENT DATE: 20120725
